FAERS Safety Report 4840957-8 (Version None)
Quarter: 2005Q4

REPORT INFORMATION
  Report Type: 
  Country: None (occurrence: None)
  Receive Date: 20051130
  Receipt Date: 20050803
  Transmission Date: 20060501
  Serious: No
  Sender: FDA-Public Use
  Company Number: US-BRISTOL-MYERS SQUIBB COMPANY-13063946

PATIENT
  Age: 12 Year
  Sex: Male
  Weight: 84 kg

DRUGS (3)
  1. ABILIFY [Suspect]
     Indication: BIPOLAR DISORDER
     Dates: start: 20040101
  2. LITHIUM [Concomitant]
  3. DEPAKOTE [Concomitant]

REACTIONS (1)
  - PYREXIA [None]
